FAERS Safety Report 10307475 (Version 3)
Quarter: 2014Q3

REPORT INFORMATION
  Report Type: Spontaneous
  Country: US (occurrence: US)
  Receive Date: 20140716
  Receipt Date: 20140923
  Transmission Date: 20150326
  Serious: Yes (Hospitalization)
  Sender: FDA-Public Use
  Company Number: PHHY2014US085721

PATIENT
  Age: 78 Year
  Sex: Male

DRUGS (10)
  1. RIVASTIGMIN [Suspect]
     Active Substance: RIVASTIGMINE
     Indication: DEMENTIA WITH LEWY BODIES
     Dosage: 9.5 MG,
     Route: 062
  2. RIVASTIGMIN [Suspect]
     Active Substance: RIVASTIGMINE
     Dosage: 13.5 MG, UNK
  3. WARFARIN [Concomitant]
     Active Substance: WARFARIN
     Indication: ATRIAL FIBRILLATION
     Dosage: 05 MG PER DAY
     Route: 048
  4. DONEPEZIL [Suspect]
     Active Substance: DONEPEZIL
     Indication: DEMENTIA WITH LEWY BODIES
     Dosage: 10 MG PER DAY
     Route: 048
  5. RIVASTIGMIN [Suspect]
     Active Substance: RIVASTIGMINE
     Dosage: 9 MG, UNK
  6. RIVASTIGMIN [Suspect]
     Active Substance: RIVASTIGMINE
     Dosage: 18 MG, UNK
  7. CARBIDOPA/LEVODOPA [Concomitant]
     Active Substance: CARBIDOPA\LEVODOPA
     Dosage: 1 DF, BID (25 TO 100 MG)
     Route: 048
  8. RIVASTIGMIN [Suspect]
     Active Substance: RIVASTIGMINE
     Indication: OFF LABEL USE
     Dosage: 4.5 MG, UNK
  9. TRAZODONE [Concomitant]
     Active Substance: TRAZODONE HYDROCHLORIDE
     Dosage: 25 MG, QHS
     Route: 048
  10. METOPROLOL [Concomitant]
     Active Substance: METOPROLOL
     Dosage: 25 MG, QD
     Route: 048

REACTIONS (10)
  - Lethargy [Recovering/Resolving]
  - Blood cholinesterase decreased [Recovering/Resolving]
  - Drug prescribing error [Unknown]
  - Toxicity to various agents [Recovering/Resolving]
  - Miosis [Recovered/Resolved]
  - Confusional state [Recovered/Resolved]
  - Encephalopathy [Recovered/Resolved]
  - Blood pressure decreased [Unknown]
  - Sinus bradycardia [Recovered/Resolved]
  - Bradycardia [Recovered/Resolved]
